FAERS Safety Report 9015162 (Version 1)
Quarter: 2013Q1

REPORT INFORMATION
  Report Type: Spontaneous
  Country: US (occurrence: None)
  Receive Date: 20130109
  Receipt Date: 20130109
  Transmission Date: 20140127
  Serious: Yes (Disabling, Other)
  Sender: FDA-Public Use
  Company Number: None

PATIENT
  Age: 26 Year
  Sex: Female
  Weight: 65.77 kg

DRUGS (1)
  1. EFFEXOR -VENLAFAXINE- [Suspect]
     Indication: DEPRESSIVE SYMPTOM
     Route: 048
     Dates: start: 20121128, end: 20121128

REACTIONS (14)
  - Hyperhidrosis [None]
  - Heart rate increased [None]
  - Heart rate irregular [None]
  - Tremor [None]
  - Nausea [None]
  - Headache [None]
  - Disturbance in attention [None]
  - Memory impairment [None]
  - Asthenia [None]
  - Balance disorder [None]
  - Confusional state [None]
  - Paraesthesia [None]
  - Insomnia [None]
  - Pain [None]
